FAERS Safety Report 4359091-9 (Version None)
Quarter: 2004Q2

REPORT INFORMATION
  Report Type: 
  Country: None (occurrence: None)
  Receive Date: 20040517
  Receipt Date: 20040517
  Transmission Date: 20050107
  Serious: Yes (Other)
  Sender: FDA-Public Use
  Company Number: None

PATIENT
  Age: 44 Year
  Sex: Female
  Weight: 83.9154 kg

DRUGS (1)
  1. BENTYL [Suspect]
     Indication: GASTROINTESTINAL PAIN
     Dates: start: 20040428

REACTIONS (2)
  - INFUSION SITE PAIN [None]
  - MEDICATION ERROR [None]
